FAERS Safety Report 16872975 (Version 1)
Quarter: 2019Q4

REPORT INFORMATION
  Report Type: Spontaneous
  Country: US (occurrence: US)
  Receive Date: 20191001
  Receipt Date: 20191001
  Transmission Date: 20200122
  Serious: Yes (Life-Threatening, Hospitalization)
  Sender: FDA-Public Use
  Company Number: None

PATIENT
  Age: 77 Year
  Sex: Female

DRUGS (2)
  1. APIXABAN [Suspect]
     Active Substance: APIXABAN
  2. IBUPROFEN. [Concomitant]
     Active Substance: IBUPROFEN

REACTIONS (6)
  - Faeces discoloured [None]
  - Vomiting [None]
  - Diarrhoea [None]
  - Gastritis erosive [None]
  - Nausea [None]
  - Duodenal ulcer [None]

NARRATIVE: CASE EVENT DATE: 20190313
